FAERS Safety Report 8497990 (Version 4)
Quarter: 2012Q4

REPORT INFORMATION
  Report Type: 
  Country: PR (occurrence: PR)
  Receive Date: 20120406
  Receipt Date: 20120922
  Transmission Date: 20130627
  Serious: Yes (Other)
  Sender: FDA-Public Use
  Company Number: PR-ABBOTT-12P-131-0920992-00

PATIENT
  Age: 51 None
  Sex: Female
  Weight: 99.88 kg

DRUGS (2)
  1. HUMIRA 40 MG/ 0.8 ML PRE-FILLED SYRINGE [Suspect]
     Indication: PSORIASIS
     Route: 065
     Dates: start: 20110916
  2. SYNTHROID [Concomitant]
     Indication: THYROID DISORDER
     Route: 048

REACTIONS (2)
  - Tuberculin test positive [Unknown]
  - Exposure to communicable disease [Unknown]
